FAERS Safety Report 7077807-8 (Version None)
Quarter: 2010Q4

REPORT INFORMATION
  Report Type: 
  Country: None (occurrence: None)
  Receive Date: 20101101
  Receipt Date: 20101019
  Transmission Date: 20110411
  Serious: Yes (Other)
  Sender: FDA-Public Use
  Company Number: PHHY2010NL70101

PATIENT
  Sex: Male

DRUGS (3)
  1. ZOMETA [Suspect]
     Indication: PROSTATE CANCER
     Dosage: 4 MG/5 ML
     Dates: start: 20090526
  2. ZOMETA [Suspect]
     Dosage: 4 MG/5 ML
     Dates: start: 20100921
  3. ZOMETA [Suspect]
     Dosage: 4 MG/5 ML
     Dates: start: 20101019

REACTIONS (3)
  - FATIGUE [None]
  - LIMB DISCOMFORT [None]
  - NEURALGIA [None]
